FAERS Safety Report 4925169-1 (Version None)
Quarter: 2006Q1

REPORT INFORMATION
  Report Type: 
  Country: None (occurrence: None)
  Receive Date: 20060228
  Receipt Date: 20051223
  Transmission Date: 20060701
  Serious: No
  Sender: FDA-Public Use
  Company Number: US-GLAXOSMITHKLINE-A0586920A

PATIENT
  Age: 69 Year
  Sex: Male

DRUGS (7)
  1. AVODART [Suspect]
     Indication: BENIGN PROSTATIC HYPERPLASIA
     Dosage: .5MG PER DAY
     Route: 048
     Dates: start: 20050203, end: 20050901
  2. CYMBALTA [Concomitant]
  3. ATENOLOL AND CHLORTHALIDONE [Concomitant]
  4. TRAZODONE [Concomitant]
  5. COZAAR [Concomitant]
  6. PLAVIX [Concomitant]
  7. FLOMAX [Concomitant]

REACTIONS (2)
  - BREAST PAIN [None]
  - BREAST SWELLING [None]
